FAERS Safety Report 10171512 (Version 1)
Quarter: 2014Q2

REPORT INFORMATION
  Report Type: Spontaneous
  Country: US (occurrence: US)
  Receive Date: 20140514
  Receipt Date: 20140514
  Transmission Date: 20141212
  Serious: No
  Sender: FDA-Public Use
  Company Number: US-PFIZER INC-2014129515

PATIENT
  Age: 80 Year
  Sex: Male
  Weight: 65.76 kg

DRUGS (2)
  1. EMCYT [Suspect]
     Indication: PROSTATE CANCER
     Dosage: 140 MG, 3X/DAY
     Dates: start: 201402
  2. AMLODIPINE [Concomitant]
     Indication: HYPERTENSION
     Dosage: UNK, DAILY

REACTIONS (1)
  - Peripheral swelling [Unknown]
